FAERS Safety Report 5200977-0 (Version None)
Quarter: 2007Q1

REPORT INFORMATION
  Report Type: 
  Country: None (occurrence: None)
  Receive Date: 20070103
  Receipt Date: 20061218
  Transmission Date: 20070707
  Serious: Yes (Hospitalization)
  Sender: FDA-Public Use
  Company Number: GXKR2004FR00618

PATIENT
  Age: 24 Year
  Sex: Male

DRUGS (1)
  1. PARACETAMOL+CODEINE (NGX)(ACETAMINOPHEN (PARACETAMOL),CODEINE PHOSPHAT [Suspect]
     Indication: HEADACHE
     Dosage: SINGLE DOSE:  500MG/20MG, ORAL
     Route: 048

REACTIONS (1)
  - PANCREATITIS ACUTE [None]
